FAERS Safety Report 15678282 (Version 1)
Quarter: 2018Q4

REPORT INFORMATION
  Report Type: Spontaneous
  Country: ES (occurrence: ES)
  Receive Date: 20181201
  Receipt Date: 20181201
  Transmission Date: 20190205
  Serious: Yes (Other)
  Sender: FDA-Public Use
  Company Number: ES-TEVA-2018-ES-980842

PATIENT
  Age: 64 Year
  Sex: Female
  Weight: 60 kg

DRUGS (6)
  1. PRAVASTATINA SODICA (7192SO) [Suspect]
     Active Substance: PRAVASTATIN SODIUM
     Indication: HEART TRANSPLANT
     Dosage: 10 MILLIGRAM DAILY;
     Route: 048
     Dates: start: 20180626, end: 20180906
  2. PREDNISONA (886A) [Concomitant]
     Active Substance: PREDNISONE
     Indication: HEART TRANSPLANT
     Dosage: 15 MILLIGRAM DAILY;
     Route: 048
     Dates: start: 20180626
  3. SEPTRIN FORTE 160 MG/800 MG TABLETS, 20 TABLETS [Concomitant]
     Indication: HEART TRANSPLANT
     Route: 048
     Dates: start: 20180626, end: 20180906
  4. IMUREL 50 MG FILM-COATED TABLETS, 50 TABLETS [Concomitant]
     Indication: HEART TRANSPLANT
     Dosage: 150 MILLIGRAM DAILY;
     Route: 048
     Dates: start: 20180626
  5. CICLOSPORINA (406A) [Concomitant]
     Active Substance: CYCLOSPORINE
     Indication: HEART TRANSPLANT
     Dosage: 250 MILLIGRAM DAILY;
     Route: 048
     Dates: start: 20180626
  6. NIFURTIMOX (5003A) [Suspect]
     Active Substance: NIFURTIMOX
     Indication: AMERICAN TRYPANOSOMIASIS
     Dosage: 480 MILLIGRAM DAILY;
     Route: 048
     Dates: start: 20180721, end: 20180906

REACTIONS (4)
  - Nausea [Recovered/Resolved]
  - Asthenia [Recovered/Resolved]
  - Dysmetria [Recovered/Resolved]
  - Vision blurred [Recovered/Resolved]

NARRATIVE: CASE EVENT DATE: 20180901
